FAERS Safety Report 22618333 (Version 2)
Quarter: 2024Q3

REPORT INFORMATION
  Report Type: Spontaneous
  Country: US (occurrence: US)
  Receive Date: 20230620
  Receipt Date: 20240711
  Transmission Date: 20241016
  Serious: No
  Sender: PIERRE FABRE MEDICAMENT
  Company Number: US-PFM-2022-07813

PATIENT
  Sex: Female
  Weight: 7.542 kg

DRUGS (1)
  1. HEMANGEOL [Suspect]
     Active Substance: PROPRANOLOL HYDROCHLORIDE
     Indication: Haemangioma
     Dosage: 0.35 ML, BID (2/DAY)
     Route: 048

REACTIONS (4)
  - Abdominal discomfort [Unknown]
  - Muscle spasms [Unknown]
  - Abnormal faeces [Unknown]
  - Peripheral coldness [Unknown]
